FAERS Safety Report 7223277-6 (Version None)
Quarter: 2011Q1

REPORT INFORMATION
  Report Type: 
  Country: None (occurrence: None)
  Receive Date: 20110112
  Receipt Date: 20100412
  Transmission Date: 20110831
  Serious: No
  Sender: FDA-Public Use
  Company Number: US-ALLERGAN-1004757US

PATIENT
  Sex: Female

DRUGS (5)
  1. MULTI-VITAMIN [Concomitant]
  2. LIPITOR [Concomitant]
  3. CADUET [Concomitant]
  4. EVISTA [Concomitant]
  5. RESTASIS [Suspect]
     Indication: DRY EYE
     Dosage: UNK
     Route: 061

REACTIONS (3)
  - MADAROSIS [None]
  - EYE DISCHARGE [None]
  - DRUG INEFFECTIVE [None]
